FAERS Safety Report 22608475 (Version 1)
Quarter: 2023Q2

REPORT INFORMATION
  Report Type: Spontaneous
  Country: CA (occurrence: None)
  Receive Date: 20230616
  Receipt Date: 20230616
  Transmission Date: 20230722
  Serious: Yes (Hospitalization, Disabling, Other)
  Sender: FDA-Public Use
  Company Number: 2023A137291

PATIENT
  Age: 80 Year
  Sex: Male
  Weight: 75 kg

DRUGS (10)
  1. DAPAGLIFLOZIN [Suspect]
     Active Substance: DAPAGLIFLOZIN
     Indication: Type 2 diabetes mellitus
     Route: 048
  2. ACETAMINOPHEN [Concomitant]
     Active Substance: ACETAMINOPHEN
  3. ADMELOG SOLOSTAR 3ML PREFILLED PEN [Concomitant]
     Route: 058
  4. AMLODIPINE [Concomitant]
     Active Substance: AMLODIPINE BESYLATE
  5. ASPIRIN [Concomitant]
     Active Substance: ASPIRIN
  6. CLOPIDOGREL [Concomitant]
     Active Substance: CLOPIDOGREL BISULFATE
  7. EZETIMIBE [Concomitant]
     Active Substance: EZETIMIBE
  8. FUROSEMIDE [Concomitant]
     Active Substance: FUROSEMIDE
  9. HYDROMORPHONE [Concomitant]
     Active Substance: HYDROMORPHONE
  10. ISOSORBIDE MONONITRATE [Concomitant]
     Active Substance: ISOSORBIDE MONONITRATE

REACTIONS (8)
  - Foot amputation [Recovered/Resolved with Sequelae]
  - Osteomyelitis [Recovered/Resolved with Sequelae]
  - Wound infection [Recovered/Resolved with Sequelae]
  - Erythema [Recovered/Resolved with Sequelae]
  - General physical health deterioration [Recovered/Resolved with Sequelae]
  - Oedema peripheral [Recovered/Resolved with Sequelae]
  - Pain in extremity [Recovered/Resolved with Sequelae]
  - Pyrexia [Recovered/Resolved with Sequelae]
